FAERS Safety Report 9335484 (Version 1)
Quarter: 2013Q2

REPORT INFORMATION
  Report Type: Spontaneous
  Country: US (occurrence: US)
  Receive Date: 20130607
  Receipt Date: 20130607
  Transmission Date: 20140414
  Serious: Yes (Death)
  Sender: FDA-Public Use
  Company Number: US-ROCHE-1231916

PATIENT
  Age: 54 Year
  Sex: Male

DRUGS (4)
  1. AVASTIN [Suspect]
     Indication: NON-SMALL CELL LUNG CANCER
     Route: 065
  2. ALIMTA [Concomitant]
  3. TAXOL [Concomitant]
  4. CARBOPLATIN [Concomitant]

REACTIONS (2)
  - Haemoptysis [Fatal]
  - Lung neoplasm malignant [Fatal]
